FAERS Safety Report 7545667-4 (Version None)
Quarter: 2011Q2

REPORT INFORMATION
  Report Type: 
  Country: None (occurrence: None)
  Receive Date: 20110613
  Receipt Date: 20110613
  Transmission Date: 20111010
  Serious: No
  Sender: FDA-Public Use
  Company Number: None

PATIENT
  Age: 55 Year
  Sex: Male

DRUGS (1)
  1. SAXAGLIPTIN [Suspect]
     Indication: DIABETES MELLITUS
     Dates: start: 20110510, end: 20110607

REACTIONS (2)
  - RASH PRURITIC [None]
  - RASH MORBILLIFORM [None]
